FAERS Safety Report 19115795 (Version 1)
Quarter: 2021Q2

REPORT INFORMATION
  Report Type: Spontaneous
  Country: US (occurrence: US)
  Receive Date: 20210409
  Receipt Date: 20210409
  Transmission Date: 20210717
  Serious: No
  Sender: FDA-Public Use
  Company Number: US-GLAXOSMITHKLINE-US2021AMR074574

PATIENT
  Age: 80 Year
  Sex: Male

DRUGS (1)
  1. ALBUTEROL SULFATE. [Suspect]
     Active Substance: ALBUTEROL SULFATE
     Indication: PRODUCT USED FOR UNKNOWN INDICATION
     Dosage: 1 PUFF(S), Z EVERY 4 HRS AS NEEDED
     Route: 055

REACTIONS (5)
  - Accidental exposure to product [Recovered/Resolved]
  - Dyspnoea exertional [Unknown]
  - Drug ineffective [Unknown]
  - Product design confusion [Unknown]
  - Wrong technique in product usage process [Unknown]
